FAERS Safety Report 21663668 (Version 1)
Quarter: 2022Q4

REPORT INFORMATION
  Report Type: Spontaneous
  Country: US (occurrence: US)
  Receive Date: 20221130
  Receipt Date: 20221130
  Transmission Date: 20230112
  Serious: No
  Sender: FDA-Public Use
  Company Number: US-ABBVIE-4205631

PATIENT
  Sex: Male

DRUGS (1)
  1. HUMIRA [Suspect]
     Active Substance: ADALIMUMAB
     Indication: Rheumatoid arthritis
     Dosage: 40 MG
     Route: 058

REACTIONS (8)
  - Fall [Unknown]
  - Laryngitis [Recovered/Resolved]
  - Contusion [Unknown]
  - Headache [Unknown]
  - Pneumonia [Recovered/Resolved]
  - Rash [Unknown]
  - Sinusitis [Recovered/Resolved]
  - Injection site reaction [Unknown]
